FAERS Safety Report 13780158 (Version 2)
Quarter: 2017Q3

REPORT INFORMATION
  Report Type: Spontaneous
  Country: US (occurrence: US)
  Receive Date: 20170724
  Receipt Date: 20170901
  Transmission Date: 20171127
  Serious: Yes (Death, Other)
  Sender: FDA-Public Use
  Company Number: US-ROCHE-1925456

PATIENT
  Age: 75 Year
  Sex: Male
  Weight: 96 kg

DRUGS (1)
  1. ESBRIET [Suspect]
     Active Substance: PIRFENIDONE
     Indication: IDIOPATHIC PULMONARY FIBROSIS
     Dosage: 3 CAPSULES OF PIRFENIDONE THRICE A DAY WITH FOOD BY MOUTH
     Route: 048
     Dates: start: 201608

REACTIONS (5)
  - Mitral valve incompetence [Unknown]
  - Acute kidney injury [Unknown]
  - Acute respiratory failure [Fatal]
  - Abdominal pain upper [Unknown]
  - Cardiac failure congestive [Unknown]

NARRATIVE: CASE EVENT DATE: 20170710
